FAERS Safety Report 9644916 (Version 1)
Quarter: 2013Q4

REPORT INFORMATION
  Report Type: Spontaneous
  Country: US (occurrence: US)
  Receive Date: 20131025
  Receipt Date: 20131025
  Transmission Date: 20140711
  Serious: No
  Sender: FDA-Public Use
  Company Number: US-PFIZER INC-2013302591

PATIENT
  Age: 59 Year
  Sex: Male
  Weight: 99.77 kg

DRUGS (4)
  1. LYRICA [Suspect]
     Indication: NEURALGIA
     Dosage: 25 MG, 4X/DAY
     Route: 048
     Dates: start: 201110
  2. LYRICA [Suspect]
     Dosage: 50 MG, 4X/DAY
     Route: 048
  3. LYRICA [Suspect]
     Dosage: 75 MG, 4X/DAY
     Route: 048
  4. LYRICA [Suspect]
     Dosage: 100 MG, 4X/DAY
     Route: 048

REACTIONS (3)
  - Vision blurred [Unknown]
  - Arthralgia [Unknown]
  - Drug ineffective [Unknown]
